FAERS Safety Report 16965566 (Version 1)
Quarter: 2019Q4

REPORT INFORMATION
  Report Type: Spontaneous
  Country: CN (occurrence: CN)
  Receive Date: 20191028
  Receipt Date: 20191028
  Transmission Date: 20200122
  Serious: Yes (Other)
  Sender: FDA-Public Use
  Company Number: NVSC2019CN015834

PATIENT

DRUGS (1)
  1. PREDNISONE. [Suspect]
     Active Substance: PREDNISONE
     Indication: APLASIA PURE RED CELL
     Dosage: 1-2 MG/KG, QD
     Route: 048

REACTIONS (2)
  - Cushing^s syndrome [Recovered/Resolved]
  - Product use in unapproved indication [Unknown]
